FAERS Safety Report 8862416 (Version 1)
Quarter: 2012Q4

REPORT INFORMATION
  Report Type: 
  Country: US (occurrence: US)
  Receive Date: 20121026
  Receipt Date: 20121026
  Transmission Date: 20130627
  Serious: Yes (Other)
  Sender: FDA-Public Use
  Company Number: PHEH2012US020748

PATIENT
  Sex: Male

DRUGS (1)
  1. SANDIMMUN NEORAL [Suspect]
     Indication: HEART TRANSPLANT
     Dosage: 100 mg, BID
     Dates: start: 20120708

REACTIONS (3)
  - Cerebral haemorrhage [Unknown]
  - Brain oedema [Unknown]
  - Amnesia [Unknown]
